FAERS Safety Report 4822682-2 (Version None)
Quarter: 2005Q4

REPORT INFORMATION
  Report Type: 
  Country: None (occurrence: None)
  Receive Date: 20051108
  Receipt Date: 20051027
  Transmission Date: 20060501
  Serious: Yes (Hospitalization)
  Sender: FDA-Public Use
  Company Number: 420938

PATIENT
  Age: 92 Year
  Sex: Female

DRUGS (9)
  1. CARVEDILOL [Suspect]
     Indication: CARDIAC FAILURE CHRONIC
     Dosage: 2.5MG TWICE PER DAY
     Route: 048
     Dates: start: 20041112
  2. NU-LOTAN [Concomitant]
     Dates: start: 20010901
  3. DIGOXIN [Concomitant]
     Dates: start: 20020111
  4. BISOPROLOL [Concomitant]
     Dates: start: 20020207
  5. ASPIRIN [Concomitant]
     Dates: start: 20010901
  6. BASEN [Concomitant]
     Dates: start: 20020725
  7. LASIX [Concomitant]
     Dates: start: 20041112
  8. SILECE [Concomitant]
     Dates: start: 19981121
  9. AMARYL [Concomitant]
     Dates: start: 20041028

REACTIONS (1)
  - ANAEMIA [None]
